FAERS Safety Report 4546626-6 (Version None)
Quarter: 2005Q1

REPORT INFORMATION
  Report Type: 
  Country: None (occurrence: None)
  Receive Date: 20050103
  Receipt Date: 20041209
  Transmission Date: 20050727
  Serious: Yes (Hospitalization, Other)
  Sender: FDA-Public Use
  Company Number: EWC041241861

PATIENT
  Age: 43 Year
  Sex: Female

DRUGS (8)
  1. CYMBALTA [Suspect]
     Indication: MAJOR DEPRESSION
     Dosage: 60 MG/1 DAY
     Dates: start: 20041202, end: 20041206
  2. CARVEDILOL [Concomitant]
  3. RAMIPRIL [Concomitant]
  4. ASPIRIN [Concomitant]
  5. PLENISH-K (POTASSIUM CHLORIDE) [Concomitant]
  6. PRAVA (LOMUSTINE) [Concomitant]
  7. ATIVAN [Concomitant]
  8. LORAMET (LORMETAZEPAM) [Concomitant]

REACTIONS (4)
  - GRAND MAL CONVULSION [None]
  - NAUSEA [None]
  - STRESS [None]
  - SUICIDAL IDEATION [None]
